FAERS Safety Report 22212544 (Version 1)
Quarter: 2023Q2

REPORT INFORMATION
  Report Type: Other
  Country: None (occurrence: CA)
  Receive Date: 20230414
  Receipt Date: 20230414
  Transmission Date: 20230721
  Serious: Yes (Hospitalization)
  Sender: FDA-Public Use
  Company Number: CA-B.Braun Medical Inc.-2140353

PATIENT
  Age: 29 Year
  Sex: Female

DRUGS (4)
  1. ACETAMINOPHEN [Suspect]
     Active Substance: ACETAMINOPHEN
     Indication: Pain management
  2. OXYCODONE [Suspect]
     Active Substance: OXYCODONE
  3. OXYCODONE. [Suspect]
     Active Substance: OXYCODONE HYDROCHLORIDE
  4. GABAPENTIN [Suspect]
     Active Substance: GABAPENTIN

REACTIONS (2)
  - Metabolic acidosis [Recovered/Resolved]
  - Maternal exposure during pregnancy [Recovered/Resolved]
